FAERS Safety Report 9960620 (Version 1)
Quarter: 2014Q1

REPORT INFORMATION
  Report Type: Spontaneous
  Country: US (occurrence: None)
  Receive Date: 20140304
  Receipt Date: 20140304
  Transmission Date: 20141002
  Serious: Yes (Other)
  Sender: FDA-Public Use
  Company Number: None

PATIENT
  Age: 39 Year
  Sex: Female
  Weight: 63.5 kg

DRUGS (1)
  1. ZOMIG [Suspect]
     Dosage: 2.5 MG MIGRAINE PRN ORAL
     Route: 048
     Dates: start: 201401, end: 201402

REACTIONS (3)
  - Vomiting [None]
  - Migraine [None]
  - Product substitution issue [None]
